FAERS Safety Report 7930150-4 (Version None)
Quarter: 2011Q4

REPORT INFORMATION
  Report Type: 
  Country: None (occurrence: None)
  Receive Date: 20111117
  Receipt Date: 20111108
  Transmission Date: 20120403
  Serious: Yes (Hospitalization)
  Sender: FDA-Public Use
  Company Number: 201111041

PATIENT
  Sex: Female

DRUGS (1)
  1. TESTIM [Suspect]
     Indication: BLOOD TESTOSTERONE DECREASED
     Dosage: HELD DRUG FOR 10 DAYS APPOX IN 10/2011, TRANSDERMAL
     Route: 062

REACTIONS (1)
  - DRUG INEFFECTIVE [None]
